FAERS Safety Report 23375536 (Version 1)
Quarter: 2024Q1

REPORT INFORMATION
  Report Type: Report from Study
  Country: AR (occurrence: AR)
  Receive Date: 20240107
  Receipt Date: 20240107
  Transmission Date: 20240410
  Serious: Yes (Other)
  Sender: FDA-Public Use
  Company Number: AR-002147023-NVSC2023AR172411

PATIENT
  Age: 29 Year
  Sex: Female

DRUGS (1)
  1. KISQALI [Suspect]
     Active Substance: RIBOCICLIB
     Indication: Breast cancer metastatic
     Dosage: 600 MG, QD
     Route: 048
     Dates: start: 20230621

REACTIONS (9)
  - Metastasis [Unknown]
  - Pneumonia [Unknown]
  - Influenza [Unknown]
  - Speech disorder [Unknown]
  - Drug ineffective [Unknown]
  - Synovial cyst [Unknown]
  - Lung disorder [Unknown]
  - Respiratory disorder [Unknown]
  - Dysphagia [Unknown]

NARRATIVE: CASE EVENT DATE: 20230801
